FAERS Safety Report 12816606 (Version 2)
Quarter: 2017Q1

REPORT INFORMATION
  Report Type: Spontaneous
  Country: US (occurrence: US)
  Receive Date: 20161005
  Receipt Date: 20170113
  Transmission Date: 20170428
  Serious: Yes (Other)
  Sender: FDA-Public Use
  Company Number: US-AMGEN-USASP2015105363

PATIENT
  Age: 61 Year
  Sex: Female

DRUGS (1)
  1. PROLIA [Suspect]
     Active Substance: DENOSUMAB
     Indication: OSTEOPOROSIS
     Dosage: UNK, Q12MO
     Route: 065
     Dates: start: 20151005

REACTIONS (8)
  - Musculoskeletal stiffness [Unknown]
  - Pain in extremity [Unknown]
  - Intentional product misuse [Unknown]
  - Adverse event [Unknown]
  - Peripheral coldness [Not Recovered/Not Resolved]
  - Myalgia [Unknown]
  - Mobility decreased [Unknown]
  - Gait disturbance [Unknown]

NARRATIVE: CASE EVENT DATE: 201510
